FAERS Safety Report 8001466-0 (Version None)
Quarter: 2011Q4

REPORT INFORMATION
  Report Type: 
  Country: None (occurrence: None)
  Receive Date: 20111222
  Receipt Date: 20111213
  Transmission Date: 20120403
  Serious: Yes (Hospitalization)
  Sender: FDA-Public Use
  Company Number: US-JNJFOC-20111206156

PATIENT
  Sex: Female
  Weight: 45.36 kg

DRUGS (6)
  1. REMICADE [Suspect]
     Indication: CROHN'S DISEASE
     Route: 042
     Dates: start: 20110601, end: 20110801
  2. REMICADE [Suspect]
     Indication: COELIAC DISEASE
     Route: 042
     Dates: start: 20110601, end: 20110801
  3. PENTASA [Concomitant]
     Indication: COELIAC DISEASE
     Dosage: DOSE STRENGTH: 500MG
     Route: 048
  4. PENTASA [Concomitant]
     Indication: CROHN'S DISEASE
     Dosage: DOSE STRENGTH: 500MG
     Route: 048
  5. PREDNISONE [Concomitant]
     Indication: CROHN'S DISEASE
     Route: 048
  6. PREDNISONE [Concomitant]
     Indication: COELIAC DISEASE
     Route: 048

REACTIONS (4)
  - INTESTINAL OBSTRUCTION [None]
  - DRUG INEFFECTIVE [None]
  - SYNCOPE [None]
  - HAIR GROWTH ABNORMAL [None]
